FAERS Safety Report 7089132-X (Version None)
Quarter: 2010Q4

REPORT INFORMATION
  Report Type: 
  Country: None (occurrence: None)
  Receive Date: 20101108
  Receipt Date: 20101103
  Transmission Date: 20110411
  Serious: Yes (Other)
  Sender: FDA-Public Use
  Company Number: IL-BRISTOL-MYERS SQUIBB COMPANY-15368673

PATIENT
  Age: 53 Year
  Sex: Male

DRUGS (1)
  1. BARACLUDE [Suspect]
     Dosage: 1 DF = 0.5 UNITS NOS ABOUT 6 WEEKS

REACTIONS (2)
  - OESOPHAGEAL CANDIDIASIS [None]
  - OROPHARYNGEAL CANDIDIASIS [None]
